FAERS Safety Report 11981957 (Version 1)
Quarter: 2016Q1

REPORT INFORMATION
  Report Type: Spontaneous
  Country: US (occurrence: US)
  Receive Date: 20160201
  Receipt Date: 20160201
  Transmission Date: 20160526
  Serious: Yes (Hospitalization)
  Sender: FDA-Public Use
  Company Number: US-BEH-2016058016

PATIENT
  Age: 54 Year
  Sex: Female
  Weight: 76 kg

DRUGS (23)
  1. SODIUM CHLORIDE. [Concomitant]
     Active Substance: SODIUM CHLORIDE
  2. ZYRTEC [Concomitant]
     Active Substance: CETIRIZINE HYDROCHLORIDE
  3. ALBUTEROL. [Concomitant]
     Active Substance: ALBUTEROL
  4. EPIPEN [Concomitant]
     Active Substance: EPINEPHRINE
  5. ZEMAIRA [Suspect]
     Active Substance: .ALPHA.1-PROTEINASE INHIBITOR HUMAN
     Indication: ALPHA-1 ANTI-TRYPSIN DEFICIENCY
     Dates: start: 20090107
  6. DIPHENHYDRAMINE. [Concomitant]
     Active Substance: DIPHENHYDRAMINE
  7. LIDOCAINE. [Concomitant]
     Active Substance: LIDOCAINE
  8. OXYGEN. [Concomitant]
     Active Substance: OXYGEN
  9. SINGULAIR [Concomitant]
     Active Substance: MONTELUKAST SODIUM
  10. ASPIRIN. [Concomitant]
     Active Substance: ASPIRIN
  11. FLONASE [Concomitant]
     Active Substance: FLUTICASONE PROPIONATE
  12. MAGNESIUM [Concomitant]
     Active Substance: MAGNESIUM
  13. XOPENEX [Concomitant]
     Active Substance: LEVALBUTEROL HYDROCHLORIDE
  14. FLAXSEED [Concomitant]
     Active Substance: FLAX SEED
  15. CARDIZEM [Concomitant]
     Active Substance: DILTIAZEM HYDROCHLORIDE
  16. XANAX [Concomitant]
     Active Substance: ALPRAZOLAM
  17. SPIRIVA [Concomitant]
     Active Substance: TIOTROPIUM BROMIDE MONOHYDRATE
  18. MARINOL [Concomitant]
     Active Substance: DRONABINOL
  19. CLARITIN [Concomitant]
     Active Substance: LORATADINE
  20. CALCIUM [Concomitant]
     Active Substance: CALCIUM
  21. ZOLOFT [Concomitant]
     Active Substance: SERTRALINE HYDROCHLORIDE
  22. AZELASTINE [Concomitant]
     Active Substance: AZELASTINE
  23. MELATONIN [Concomitant]
     Active Substance: MELATONIN

REACTIONS (3)
  - Heart rate abnormal [Unknown]
  - Fatigue [Unknown]
  - Respiratory disorder [Unknown]

NARRATIVE: CASE EVENT DATE: 20151219
